FAERS Safety Report 6655608-X (Version None)
Quarter: 2010Q1

REPORT INFORMATION
  Report Type: 
  Country: None (occurrence: None)
  Receive Date: 20100329
  Receipt Date: 20100317
  Transmission Date: 20100710
  Serious: No
  Sender: FDA-Public Use
  Company Number: US-TYCO HEALTHCARE/MALLINCKRODT-T201000872

PATIENT

DRUGS (2)
  1. TECHNETIUM TC 99M SESTAMIBI [Suspect]
     Dosage: UNK
     Dates: start: 20100317, end: 20100317
  2. ULTRA-TECHNEKOW [Concomitant]
     Dosage: UNK
     Dates: start: 20100317, end: 20100317

REACTIONS (1)
  - DRUG INEFFECTIVE [None]
